FAERS Safety Report 5884770-1 (Version None)
Quarter: 2008Q3

REPORT INFORMATION
  Report Type: 
  Country: None (occurrence: None)
  Receive Date: 20080916
  Receipt Date: 20080905
  Transmission Date: 20090109
  Serious: Yes (Hospitalization, Other)
  Sender: FDA-Public Use
  Company Number: US-AMGEN-QUU295851

PATIENT
  Sex: Female

DRUGS (9)
  1. ENBREL [Suspect]
     Indication: RHEUMATOID ARTHRITIS
     Route: 058
     Dates: start: 20020701
  2. ATIVAN [Concomitant]
  3. PROTONIX [Concomitant]
  4. PREMARIN [Concomitant]
     Dates: end: 20060701
  5. FLEXERIL [Concomitant]
  6. TOBRAMYCIN [Concomitant]
     Route: 047
  7. COMBIVENT [Concomitant]
  8. AROMASIN [Concomitant]
     Dates: start: 20070601
  9. FLUTICASONE PROPIONATE [Concomitant]
     Route: 045

REACTIONS (15)
  - ADENOMA BENIGN [None]
  - ASTHMA [None]
  - BREAST CANCER [None]
  - FATIGUE [None]
  - FUNGUS SPUTUM TEST POSITIVE [None]
  - GASTROOESOPHAGEAL REFLUX DISEASE [None]
  - INCREASED TENDENCY TO BRUISE [None]
  - LUNG NEOPLASM [None]
  - NAUSEA [None]
  - PYREXIA [None]
  - RADIATION SKIN INJURY [None]
  - RHEUMATOID ARTHRITIS [None]
  - VOMITING [None]
  - WEIGHT DECREASED [None]
  - WOUND INFECTION STAPHYLOCOCCAL [None]
